FAERS Safety Report 8181416-7 (Version None)
Quarter: 2012Q1

REPORT INFORMATION
  Report Type: 
  Country: None (occurrence: None)
  Receive Date: 20120301
  Receipt Date: 20120301
  Transmission Date: 20120608
  Serious: Yes (Life-Threatening, Other)
  Sender: FDA-Public Use
  Company Number: None

PATIENT
  Sex: Male
  Weight: 92.5338 kg

DRUGS (4)
  1. PAXIL [Suspect]
     Indication: DEPRESSION
     Dates: start: 20100101
  2. SEROQUEL [Concomitant]
  3. LITHIUM CARBONATE [Concomitant]
  4. BUPROPION HYDROCHLORIDE [Suspect]
     Indication: DEPRESSION
     Dosage: 150 MG TID ORAL
     Route: 048
     Dates: start: 20120103

REACTIONS (8)
  - URTICARIA [None]
  - CONFUSIONAL STATE [None]
  - DEPRESSION [None]
  - SUICIDAL IDEATION [None]
  - PRURITUS [None]
  - DISCOMFORT [None]
  - PRODUCT SUBSTITUTION ISSUE [None]
  - CONDITION AGGRAVATED [None]
